FAERS Safety Report 8068540-4 (Version None)
Quarter: 2012Q1

REPORT INFORMATION
  Report Type: 
  Country: None (occurrence: None)
  Receive Date: 20120124
  Receipt Date: 20111102
  Transmission Date: 20120608
  Serious: No
  Sender: FDA-Public Use
  Company Number: US-AMGEN-USASP2011057294

PATIENT
  Age: 77 Year
  Sex: Female

DRUGS (7)
  1. MULTI-VITAMIN [Concomitant]
     Dosage: UNK UNK, QD
  2. OSTEO BI-FLEX [Concomitant]
     Dosage: UNK UNK, QD
  3. VITAMIN D [Concomitant]
     Dosage: 1 IU, QD
  4. ASPIRIN [Concomitant]
     Dosage: 1 MG, QD
  5. CALCIUM [Concomitant]
     Dosage: UNK
  6. VITAMIN E [Concomitant]
  7. PROLIA [Suspect]
     Indication: OSTEOPOROSIS POSTMENOPAUSAL
     Dosage: 60 MG, Q6MO
     Dates: start: 20110906

REACTIONS (2)
  - PRURITUS [None]
  - ALOPECIA [None]
